FAERS Safety Report 6241617-1 (Version None)
Quarter: 2009Q2

REPORT INFORMATION
  Report Type: 
  Country: None (occurrence: None)
  Receive Date: 20090623
  Receipt Date: 20051128
  Transmission Date: 20091009
  Serious: Yes (Hospitalization)
  Sender: FDA-Public Use
  Company Number: AT-ROCHE-427410

PATIENT
  Sex: Male

DRUGS (21)
  1. DACLIZUMAB [Suspect]
     Route: 042
     Dates: start: 20030219
  2. DACLIZUMAB [Suspect]
     Dosage: WEEK 2,4,6,8 VISIT.
     Route: 042
     Dates: start: 20030304, end: 20030414
  3. MYCOPHENOLATE MOFETIL [Suspect]
     Route: 048
     Dates: start: 20030219, end: 20030303
  4. MYCOPHENOLATE MOFETIL [Suspect]
     Route: 048
     Dates: start: 20040301, end: 20040301
  5. SIROLIMUS [Suspect]
     Route: 048
     Dates: start: 20030219, end: 20030422
  6. TACROLIMUS [Suspect]
     Route: 048
     Dates: start: 20030423, end: 20040303
  7. PREDNISOLONE [Suspect]
     Route: 048
     Dates: start: 20030221
  8. BAYPRESS [Concomitant]
     Route: 048
     Dates: start: 20030201
  9. SELOKEN [Concomitant]
     Route: 048
     Dates: start: 20030401
  10. ASPIRIN [Concomitant]
     Route: 048
     Dates: start: 20030301
  11. COZAAR [Concomitant]
     Route: 048
     Dates: start: 20030401
  12. PANTOPRAZOLE SODIUM [Concomitant]
     Route: 048
     Dates: start: 20030201
  13. COTRIM [Concomitant]
     Route: 048
     Dates: start: 20030201
  14. CIPROFLOXACIN HCL [Concomitant]
     Route: 048
     Dates: start: 20040201
  15. ROCALTROL [Concomitant]
     Route: 048
     Dates: start: 20040201
  16. METHYLPREDNISOLONE [Suspect]
     Route: 042
     Dates: start: 20030219
  17. METHYLPREDNISOLONE [Suspect]
     Route: 042
     Dates: start: 20030220
  18. METHYLPREDNISOLONE [Suspect]
     Route: 042
     Dates: start: 20030220
  19. METHYLPREDNISOLONE [Suspect]
     Route: 042
     Dates: start: 20030411
  20. METHYLPREDNISOLONE [Suspect]
     Route: 042
     Dates: start: 20030412
  21. METHYLPREDNISOLONE [Suspect]
     Route: 042
     Dates: start: 20030413

REACTIONS (2)
  - T-CELL LYMPHOMA [None]
  - TONSILLITIS [None]
